FAERS Safety Report 20093708 (Version 1)
Quarter: 2021Q4

REPORT INFORMATION
  Report Type: Spontaneous
  Country: CN (occurrence: None)
  Receive Date: 20211121
  Receipt Date: 20211121
  Transmission Date: 20220303
  Serious: Yes (Other)
  Sender: FDA-Public Use
  Company Number: CN-ROCHE-2961034

PATIENT
  Age: 50 Year
  Sex: Male

DRUGS (9)
  1. MABTHERA [Suspect]
     Active Substance: RITUXIMAB
     Indication: Splenic marginal zone lymphoma
     Route: 065
     Dates: start: 20181116
  2. FLUDARABINE [Concomitant]
     Active Substance: FLUDARABINE PHOSPHATE
     Indication: Splenic marginal zone lymphoma
     Dates: start: 20181116
  3. CYCLOPHOSPHAMIDE [Concomitant]
     Active Substance: CYCLOPHOSPHAMIDE
     Indication: Splenic marginal zone lymphoma
     Dates: start: 20150311
  4. CYCLOPHOSPHAMIDE [Concomitant]
     Active Substance: CYCLOPHOSPHAMIDE
     Dates: start: 20181116
  5. IBRUTINIB [Concomitant]
     Active Substance: IBRUTINIB
     Indication: Splenic marginal zone lymphoma
     Route: 048
     Dates: start: 20190910
  6. EPIRUBICIN [Concomitant]
     Active Substance: EPIRUBICIN
     Indication: Splenic marginal zone lymphoma
     Dates: start: 20150311
  7. VINDESINE [Concomitant]
     Active Substance: VINDESINE
     Indication: Splenic marginal zone lymphoma
     Dates: start: 20150311
  8. PREDNISOLONE [Concomitant]
     Active Substance: PREDNISOLONE
     Indication: Splenic marginal zone lymphoma
     Dates: start: 20150311
  9. ETOPOSIDE [Concomitant]
     Active Substance: ETOPOSIDE
     Indication: Splenic marginal zone lymphoma
     Dates: start: 20150311

REACTIONS (6)
  - Platelet count decreased [Unknown]
  - Herpes zoster [Unknown]
  - Lower limb fracture [Unknown]
  - Lymphocyte count increased [Unknown]
  - Drug ineffective [Unknown]
  - Off label use [Unknown]
